FAERS Safety Report 10396017 (Version 3)
Quarter: 2016Q2

REPORT INFORMATION
  Report Type: Spontaneous
  Country: US (occurrence: US)
  Receive Date: 20130815
  Receipt Date: 20160412
  Transmission Date: 20160815
  Serious: Yes (Life-Threatening, Hospitalization, Other)
  Sender: FDA-Public Use
  Company Number: ADR-2012-01831

PATIENT
  Age: 42 Year
  Sex: Male

DRUGS (1)
  1. BACLOFEN. [Suspect]
     Active Substance: BACLOFEN
     Dosage: 100 MCG/DAY
     Route: 037
     Dates: start: 20120912

REACTIONS (4)
  - Amnesia [Unknown]
  - Therapeutic response unexpected [Unknown]
  - Drug withdrawal syndrome [Unknown]
  - Gait disturbance [Unknown]

NARRATIVE: CASE EVENT DATE: 20160906
